FAERS Safety Report 20846196 (Version 1)
Quarter: 2022Q2

REPORT INFORMATION
  Report Type: Spontaneous
  Country: KR (occurrence: KR)
  Receive Date: 20220518
  Receipt Date: 20220518
  Transmission Date: 20220721
  Serious: Yes (Other)
  Sender: FDA-Public Use
  Company Number: KR-ELI_LILLY_AND_COMPANY-KR202205004611

PATIENT

DRUGS (2)
  1. GEMZAR [Suspect]
     Active Substance: GEMCITABINE HYDROCHLORIDE
     Indication: Product used for unknown indication
     Dosage: UNK MG, UNKNOWN
     Route: 065
     Dates: start: 20210323
  2. CISPLATIN [Concomitant]
     Active Substance: CISPLATIN
     Indication: Product used for unknown indication
     Dosage: UNK
     Dates: start: 20210323

REACTIONS (3)
  - White blood cell count increased [Unknown]
  - Hydrothorax [Unknown]
  - Pyrexia [Unknown]

NARRATIVE: CASE EVENT DATE: 20210326
